FAERS Safety Report 20750817 (Version 1)
Quarter: 2022Q2

REPORT INFORMATION
  Report Type: Spontaneous
  Country: US (occurrence: None)
  Receive Date: 20220426
  Receipt Date: 20220426
  Transmission Date: 20220721
  Serious: Yes (Other)
  Sender: FDA-Public Use
  Company Number: None

PATIENT
  Sex: Female

DRUGS (3)
  1. ENBREL [Suspect]
     Active Substance: ETANERCEPT
     Indication: Rheumatoid arthritis
     Dosage: FREQUENCY: WEEKLY?
     Route: 058
     Dates: start: 20211105
  2. CYCLOBENZAPR TAB [Concomitant]
  3. TOPIRAMATE TAB [Concomitant]

REACTIONS (4)
  - Arthritis [None]
  - Therapy interrupted [None]
  - Loss of personal independence in daily activities [None]
  - Pain [None]
